FAERS Safety Report 16024563 (Version 2)
Quarter: 2019Q1

REPORT INFORMATION
  Report Type: Spontaneous
  Country: US (occurrence: US)
  Receive Date: 20190301
  Receipt Date: 20190326
  Transmission Date: 20190418
  Serious: No
  Sender: FDA-Public Use
  Company Number: US-BAUSCH-BL-2019-005016

PATIENT
  Age: 60 Year
  Sex: Male
  Weight: 95.34 kg

DRUGS (1)
  1. APRISO [Suspect]
     Active Substance: MESALAMINE
     Indication: COLITIS ULCERATIVE
     Route: 048
     Dates: start: 201708, end: 201901

REACTIONS (5)
  - Headache [Recovered/Resolved]
  - Productive cough [Recovering/Resolving]
  - Dry eye [Recovering/Resolving]
  - Abdominal distension [Recovering/Resolving]
  - Pruritus [Recovering/Resolving]

NARRATIVE: CASE EVENT DATE: 201708
